FAERS Safety Report 13075071 (Version 1)
Quarter: 2016Q4

REPORT INFORMATION
  Report Type: Spontaneous
  Country: AR (occurrence: AR)
  Receive Date: 20161230
  Receipt Date: 20161230
  Transmission Date: 20170207
  Serious: Yes (Other)
  Sender: FDA-Public Use
  Company Number: AR-BAYER-2016-237186

PATIENT
  Age: 29 Year
  Sex: Female

DRUGS (2)
  1. REGORAFENIB [Suspect]
     Active Substance: REGORAFENIB
     Indication: COLORECTAL CANCER
     Dosage: 160 MG, QD FOR 21 DAYS EVERY 28
     Route: 048
     Dates: start: 201312
  2. REGORAFENIB [Suspect]
     Active Substance: REGORAFENIB
     Indication: COLORECTAL CANCER
     Dosage: UNK
     Route: 048

REACTIONS (12)
  - Pigmentation disorder [Not Recovered/Not Resolved]
  - Pain in extremity [Recovered/Resolved]
  - Skin abrasion [Recovered/Resolved]
  - Palmar erythema [Recovered/Resolved]
  - Injury [Recovered/Resolved]
  - Blister [Recovered/Resolved]
  - Skin lesion [Recovered/Resolved]
  - Arthralgia [Recovered/Resolved]
  - Pain [Recovered/Resolved]
  - Erythema [Not Recovered/Not Resolved]
  - Palmar-plantar erythrodysaesthesia syndrome [Recovered/Resolved with Sequelae]
  - Erythema [Recovered/Resolved]

NARRATIVE: CASE EVENT DATE: 201312
